FAERS Safety Report 18037779 (Version 4)
Quarter: 2022Q4

REPORT INFORMATION
  Report Type: Spontaneous
  Country: US (occurrence: US)
  Receive Date: 20200717
  Receipt Date: 20221205
  Transmission Date: 20230112
  Serious: Yes (Other)
  Sender: FDA-Public Use
  Company Number: US-SUNOVION-2020SUN002043

PATIENT
  Age: 29 Year
  Sex: Male

DRUGS (3)
  1. APTIOM [Suspect]
     Active Substance: ESLICARBAZEPINE ACETATE
     Dosage: 1200 MG (400MG ONCE A DAY AND 800MG ONCE A DAY), QD
     Route: 048
  2. APTIOM [Suspect]
     Active Substance: ESLICARBAZEPINE ACETATE
     Dosage: 1600 MG (2 800MG IN AM), QD
     Route: 048
  3. VIGABATRIN [Concomitant]
     Active Substance: VIGABATRIN
     Dosage: UNK UNK, HS
     Route: 065

REACTIONS (3)
  - Seizure [Unknown]
  - Craniocerebral injury [Unknown]
  - Emotional distress [Unknown]
